FAERS Safety Report 9998875 (Version 1)
Quarter: 2014Q1

REPORT INFORMATION
  Report Type: Spontaneous
  Country: DE (occurrence: DE)
  Receive Date: 20140312
  Receipt Date: 20140312
  Transmission Date: 20141002
  Serious: Yes (Death, Hospitalization, Other)
  Sender: FDA-Public Use
  Company Number: DE-AMGEN-DEUSP2014016363

PATIENT
  Age: 71 Year
  Sex: Female
  Weight: 80 kg

DRUGS (6)
  1. XGEVA [Suspect]
     Indication: BREAST CANCER METASTATIC
     Dosage: UNK
     Route: 065
     Dates: start: 201305
  2. AVASTIN /01555201/ [Suspect]
     Indication: BREAST CANCER METASTATIC
     Dosage: 1200 MG, Q3WK
     Route: 042
     Dates: start: 20130527
  3. PACLITAXEL [Suspect]
     Indication: BREAST CANCER METASTATIC
     Dosage: 175 MG/M2, Q3WK
     Route: 042
  4. ENALAPRIL                          /00574902/ [Concomitant]
     Indication: HYPERTENSION
     Dosage: 2.5 MG, QD
     Dates: start: 1998, end: 20130901
  5. ENALAPRIL                          /00574902/ [Concomitant]
     Indication: PULMONARY EMBOLISM
  6. ENALAPRIL                          /00574902/ [Concomitant]
     Indication: SINOATRIAL BLOCK

REACTIONS (5)
  - General physical health deterioration [Fatal]
  - Hypertension [Recovered/Resolved]
  - Pyrexia [Recovered/Resolved]
  - Left ventricular dysfunction [Recovering/Resolving]
  - Dyspnoea [Recovered/Resolved]
